FAERS Safety Report 19757422 (Version 1)
Quarter: 2021Q3

REPORT INFORMATION
  Report Type: Spontaneous
  Country: PT (occurrence: PT)
  Receive Date: 20210827
  Receipt Date: 20210827
  Transmission Date: 20211014
  Serious: Yes (Other)
  Sender: FDA-Public Use
  Company Number: PT-MYLANLABS-2021M1006601

PATIENT
  Age: 57 Year
  Sex: Female
  Weight: 100 kg

DRUGS (17)
  1. TUROX [Interacting]
     Active Substance: ETORICOXIB
     Indication: ANTIINFLAMMATORY THERAPY
     Dosage: 1 DOSAGE FORM, QD,1 TABLET, DAY, AT LUNCH
     Route: 048
     Dates: start: 20210123, end: 20210128
  2. ASPIRINA GR [Concomitant]
     Active Substance: ASPIRIN
     Indication: ANTICOAGULANT THERAPY
     Dosage: 1 DOSAGE FORM, QD 1 TABLET DAILY AT LUNCH, STARTED A LONG TIME
     Route: 048
  3. DOMPERIDONE [Concomitant]
     Active Substance: DOMPERIDONE
     Dosage: 1 DOSAGE FORM, QD 1 TABLET DAILY 20 MIN BEFORE BREAKFAST
     Route: 048
  4. PANTOPRAZOLE [Concomitant]
     Active Substance: PANTOPRAZOLE
     Dosage: 1 DOSAGE FORM
  5. BUPROPION. [Concomitant]
     Active Substance: BUPROPION
     Indication: DEPRESSION
     Dosage: 30 MILLIGRAM, QD
     Route: 048
  6. ALPRAZOLAM. [Concomitant]
     Active Substance: ALPRAZOLAM
     Dosage: 2 DOSAGE FORM, QD
  7. PANTOPRAZOLE [Concomitant]
     Active Substance: PANTOPRAZOLE
     Indication: PROPHYLAXIS
     Dosage: DAY, BEFORE BREAKFAST
     Route: 048
  8. FLUOXETINE [Concomitant]
     Active Substance: FLUOXETINE HYDROCHLORIDE
     Dosage: 3 DOSAGE FORM, QD
  9. ASPIRINA GR [Concomitant]
     Active Substance: ASPIRIN
     Indication: PROPHYLAXIS
     Dosage: 1 TABLET, DAY, AT LUNCH
     Route: 048
  10. ZOLEPTIL [Concomitant]
     Indication: PSYCHOTIC DISORDER
     Dosage: 25 MILLIGRAM, DAY, 2 TABLETS AT BEDTIME
     Route: 048
  11. FLUOXETINE [Concomitant]
     Active Substance: FLUOXETINE HYDROCHLORIDE
     Indication: DEPRESSION
     Dosage: 60 MILLIGRAM, 2 TABLETS IN THE MORNING AND 1 TABLET AT LUNCH
     Route: 048
  12. CLOPIDOGREL [Suspect]
     Active Substance: CLOPIDOGREL BISULFATE
     Indication: PROPHYLAXIS
     Dosage: 1 DOSAGE FORM, QD,1 TABLET, DAY, AT DINNER
     Route: 048
     Dates: start: 202010
  13. TUROX [Interacting]
     Active Substance: ETORICOXIB
     Indication: ANALGESIC INTERVENTION SUPPORTIVE THERAPY
     Dosage: 90 MILLIGRAM, QD 1 TABLET AT LUNCH
     Route: 048
  14. DOMPERIDONE [Concomitant]
     Active Substance: DOMPERIDONE
     Indication: FLATULENCE
     Dosage: 1 TABLET, DAY 20 MINUTES BEFOR BREAKFAST
     Route: 048
  15. ALPRAZOLAM. [Concomitant]
     Active Substance: ALPRAZOLAM
     Indication: ANXIETY
     Dosage: 2 MILLIGRAM, QD, 2 TABLETS
     Route: 048
  16. BUPROPION. [Concomitant]
     Active Substance: BUPROPION
     Dosage: 1 DOSAGE FORM, QD
     Route: 048
  17. TRITICUM [Concomitant]
     Active Substance: TRAZODONE HYDROCHLORIDE
     Indication: DEPRESSION
     Dosage: 200 MILLIGRAM, QD, 1 TABLET AND 1 THIRD TABLET
     Route: 048

REACTIONS (13)
  - Swelling [Not Recovered/Not Resolved]
  - Weight increased [Not Recovered/Not Resolved]
  - Dark circles under eyes [Recovered/Resolved]
  - Memory impairment [Recovered/Resolved]
  - Hallucination [Recovered/Resolved]
  - Purpura [Recovered/Resolved]
  - Activated partial thromboplastin time prolonged [Recovered/Resolved]
  - Heart rate increased [Recovered/Resolved]
  - Drug interaction [Recovered/Resolved]
  - Yellow skin [Recovered/Resolved]
  - Fatigue [Recovered/Resolved]
  - Palpitations [Recovered/Resolved]
  - Confusional state [Recovered/Resolved]

NARRATIVE: CASE EVENT DATE: 202101
